FAERS Safety Report 22352591 (Version 1)
Quarter: 2023Q2

REPORT INFORMATION
  Report Type: Spontaneous
  Country: US (occurrence: US)
  Receive Date: 20230523
  Receipt Date: 20230523
  Transmission Date: 20230722
  Serious: Yes (Death)
  Sender: FDA-Public Use
  Company Number: US-SLATE RUN PHARMACEUTICALS-23US001598

PATIENT

DRUGS (1)
  1. POTASSIUM CHLORIDE [Suspect]
     Active Substance: POTASSIUM CHLORIDE
     Indication: Product used for unknown indication
     Dosage: UNK MILLIEQUIVALENT

REACTIONS (4)
  - Cardiac disorder [Fatal]
  - Gastrointestinal carcinoma [Fatal]
  - Wrong technique in product usage process [Unknown]
  - Product use complaint [Unknown]
